FAERS Safety Report 15399770 (Version 2)
Quarter: 2018Q3

REPORT INFORMATION
  Report Type: Report from Study
  Country: None (occurrence: TR)
  Receive Date: 20180918
  Receipt Date: 20180921
  Transmission Date: 20181010
  Serious: Yes (Hospitalization)
  Sender: FDA-Public Use
  Company Number: TR-ABBVIE-18S-161-2489061-00

PATIENT
  Age: 73 Year
  Sex: Female
  Weight: 45 kg

DRUGS (6)
  1. DUODOPA [Suspect]
     Active Substance: CARBIDOPA\LEVODOPA
     Indication: PARKINSON^S DISEASE
     Dosage: MD(ML):3.60, CD(ML):2.70, ED(ML): 1.00
     Route: 050
     Dates: start: 20170511
  2. TRANKO BUSKAS [Concomitant]
     Active Substance: BUTYLSCOPOLAMINE BROMIDE\MEDAZEPAM
     Indication: PRODUCT USED FOR UNKNOWN INDICATION
     Route: 048
     Dates: start: 20180622
  3. COGITO [Concomitant]
     Indication: PARKINSON^S DISEASE
     Route: 048
     Dates: start: 20180330
  4. PARAFON [Concomitant]
     Active Substance: ACETAMINOPHEN\CHLORZOXAZONE
     Indication: PRODUCT USED FOR UNKNOWN INDICATION
     Route: 048
     Dates: start: 20170511
  5. DOPALEVO [Concomitant]
     Indication: PARKINSON^S DISEASE
     Route: 048
     Dates: start: 20180622
  6. LYRICA [Concomitant]
     Active Substance: PREGABALIN
     Indication: PARKINSON^S DISEASE
     Route: 048

REACTIONS (3)
  - Gastric polyps [Not Recovered/Not Resolved]
  - Eye swelling [Not Recovered/Not Resolved]
  - Fall [Recovered/Resolved]

NARRATIVE: CASE EVENT DATE: 201709
